FAERS Safety Report 8505662-5 (Version None)
Quarter: 2012Q3

REPORT INFORMATION
  Report Type: 
  Country: None (occurrence: None)
  Receive Date: 20120712
  Receipt Date: 20120703
  Transmission Date: 20120928
  Serious: Yes (Death, Hospitalization, Other)
  Sender: FDA-Public Use
  Company Number: US-VERTEX PHARMACEUTICALS INC.-AE-2012-008621

PATIENT
  Sex: Female
  Weight: 68 kg

DRUGS (4)
  1. PEGASYS [Concomitant]
     Indication: HEPATITIS C
     Route: 058
     Dates: start: 20120324, end: 20120512
  2. ATIVAN [Concomitant]
  3. INCIVEK [Suspect]
     Indication: HEPATITIS C
     Route: 048
     Dates: start: 20120324, end: 20120512
  4. RIBAVIRIN [Concomitant]
     Indication: HEPATITIS C
     Dates: start: 20120324, end: 20120512

REACTIONS (10)
  - COMA [None]
  - HEPATORENAL FAILURE [None]
  - CONVULSION [None]
  - OVERDOSE [None]
  - STAPHYLOCOCCAL INFECTION [None]
  - ANAEMIA [None]
  - ENCEPHALOPATHY [None]
  - RASH GENERALISED [None]
  - SUBARACHNOID HAEMORRHAGE [None]
  - HEADACHE [None]
